FAERS Safety Report 7101506-7 (Version None)
Quarter: 2010Q4

REPORT INFORMATION
  Report Type: 
  Country: None (occurrence: None)
  Receive Date: 20101115
  Receipt Date: 20101105
  Transmission Date: 20110411
  Serious: No
  Sender: FDA-Public Use
  Company Number: PHHY2010JP71695

PATIENT
  Age: 57 Year
  Sex: Male

DRUGS (12)
  1. TEGRETOL [Suspect]
     Dosage: 100 MG, BID
     Route: 048
  2. TERNELIN [Suspect]
     Dosage: 1 DF, BID
     Route: 048
     Dates: start: 20100910
  3. LOXONIN [Suspect]
     Route: 048
  4. GASMOTIN [Suspect]
     Route: 048
  5. BIFIDOBACTERIUM BIFIDUM [Suspect]
     Route: 048
  6. FAMOTIDINE [Suspect]
     Route: 048
  7. MOBIC [Suspect]
     Route: 048
  8. LANDEL [Suspect]
     Route: 048
  9. FLUITRAN [Suspect]
     Route: 048
  10. OPALMON [Suspect]
     Route: 048
  11. CYANOCOBALAMIN [Suspect]
     Dosage: UNK
     Route: 048
  12. AVAPRO [Suspect]
     Dosage: UNK
     Route: 048

REACTIONS (2)
  - DIZZINESS [None]
  - MENIERE'S DISEASE [None]
